FAERS Safety Report 4645459-X (Version None)
Quarter: 2005Q2

REPORT INFORMATION
  Report Type: 
  Country: None (occurrence: None)
  Receive Date: 20050425
  Receipt Date: 20050415
  Transmission Date: 20051028
  Serious: Yes (Death)
  Sender: FDA-Public Use
  Company Number: 2005AP01518

PATIENT
  Age: 89 Year
  Sex: Male
  Weight: 40 kg

DRUGS (8)
  1. CASODEX [Suspect]
     Indication: PROSTATE CANCER
     Dosage: 80 MG QOD PO
     Route: 048
     Dates: start: 20040508, end: 20040519
  2. ZYLORIC ^FAES^ [Suspect]
     Dosage: 100 MG DAILY PO
     Route: 048
     Dates: start: 20030301, end: 20040520
  3. PLETAL [Suspect]
     Dosage: 200 MG DAILY PO
     Route: 048
     Dates: start: 20040501, end: 20040520
  4. LASIX [Concomitant]
  5. GRAMALIL [Concomitant]
  6. BLOPRESS [Concomitant]
  7. ARICEPT [Concomitant]
  8. EBRANTIL [Concomitant]

REACTIONS (9)
  - CARDIAC FAILURE [None]
  - CONDITION AGGRAVATED [None]
  - CORYNEBACTERIUM INFECTION [None]
  - DRUG INEFFECTIVE [None]
  - HERPES SIMPLEX [None]
  - INTERSTITIAL LUNG DISEASE [None]
  - PNEUMONIA BACTERIAL [None]
  - RENAL FAILURE CHRONIC [None]
  - SPUTUM CULTURE POSITIVE [None]
